FAERS Safety Report 10828903 (Version 1)
Quarter: 2015Q1

REPORT INFORMATION
  Report Type: Spontaneous
  Country: US (occurrence: US)
  Receive Date: 20150219
  Receipt Date: 20150219
  Transmission Date: 20150721
  Serious: No
  Sender: FDA-Public Use
  Company Number: US-ABBVIE-14K-163-1327769-00

PATIENT
  Age: 45 Year
  Sex: Female
  Weight: 49.03 kg

DRUGS (9)
  1. FOLIC ACID. [Concomitant]
     Active Substance: FOLIC ACID
     Indication: PRODUCT USED FOR UNKNOWN INDICATION
  2. CHONDROITIN [Concomitant]
     Active Substance: CHONDROITIN
     Indication: PRODUCT USED FOR UNKNOWN INDICATION
  3. HUMIRA [Suspect]
     Active Substance: ADALIMUMAB
     Indication: ARTHRITIS ENTEROPATHIC
  4. HYDROCODONE [Concomitant]
     Active Substance: HYDROCODONE
     Indication: PRODUCT USED FOR UNKNOWN INDICATION
  5. VITAMIN D [Concomitant]
     Active Substance: CHOLECALCIFEROL
     Indication: PRODUCT USED FOR UNKNOWN INDICATION
  6. GLUCOSAMINE [Concomitant]
     Active Substance: GLUCOSAMINE
     Indication: PRODUCT USED FOR UNKNOWN INDICATION
  7. RAYOS [Concomitant]
     Active Substance: PREDNISONE
     Indication: PRODUCT USED FOR UNKNOWN INDICATION
  8. HUMIRA [Suspect]
     Active Substance: ADALIMUMAB
     Indication: CROHN^S DISEASE
     Route: 058
     Dates: start: 201408
  9. AMBIEN [Concomitant]
     Active Substance: ZOLPIDEM TARTRATE
     Indication: PRODUCT USED FOR UNKNOWN INDICATION

REACTIONS (1)
  - Injection site haemorrhage [Not Recovered/Not Resolved]

NARRATIVE: CASE EVENT DATE: 201408
